FAERS Safety Report 23308219 (Version 1)
Quarter: 2023Q4

REPORT INFORMATION
  Report Type: Report from Study
  Country: US (occurrence: US)
  Receive Date: 20231218
  Receipt Date: 20231218
  Transmission Date: 20240110
  Serious: Yes (Death)
  Sender: FDA-Public Use
  Company Number: US-BAYER-2023A180659

PATIENT
  Age: 81 Year
  Sex: Female
  Weight: 62.132 kg

DRUGS (19)
  1. ADEMPAS [Suspect]
     Active Substance: RIOCIGUAT
     Indication: Pulmonary arterial hypertension
     Dosage: UNK
     Route: 048
     Dates: start: 20231018
  2. ADEMPAS [Suspect]
     Active Substance: RIOCIGUAT
     Indication: Pulmonary arterial hypertension
     Dosage: 2.5 MG, TID
     Route: 048
  3. CARVEDILOL [Concomitant]
     Active Substance: CARVEDILOL
  4. MYRBETRIQ [Concomitant]
     Active Substance: MIRABEGRON
  5. POTASSIUM CHLORIDE [Concomitant]
     Active Substance: POTASSIUM CHLORIDE
  6. WARFARIN SODIUM [Concomitant]
     Active Substance: WARFARIN SODIUM
  7. ALBUTEROL SULFATE [Concomitant]
     Active Substance: ALBUTEROL SULFATE
  8. TRELEGY ELLIPTA [Concomitant]
     Active Substance: FLUTICASONE FUROATE\UMECLIDINIUM BROMIDE\VILANTEROL TRIFENATATE
  9. LASIX [Concomitant]
     Active Substance: FUROSEMIDE
  10. ALBUTEROL SULFATE [Concomitant]
     Active Substance: ALBUTEROL SULFATE
  11. METOLAZONE [Concomitant]
     Active Substance: METOLAZONE
  12. IRON [Concomitant]
     Active Substance: IRON
  13. SPIRONOLACTONE [Concomitant]
     Active Substance: SPIRONOLACTONE
  14. OXYGEN [Concomitant]
     Active Substance: OXYGEN
  15. ADVAIR HFA [Concomitant]
     Active Substance: FLUTICASONE PROPIONATE\SALMETEROL XINAFOATE
  16. LISINOPRIL [Concomitant]
     Active Substance: LISINOPRIL
  17. COUGH SYRUP [ANTIMONY POTASSIUM TARTRATE;PAPAVER SOMNIFERUM TINCTU [Concomitant]
  18. AMLODIPINE BESYLATE\BENAZEPRIL HYDROCHLORIDE [Concomitant]
     Active Substance: AMLODIPINE BESYLATE\BENAZEPRIL HYDROCHLORIDE
  19. AMLODIPINE BESYLATE\BENAZEPRIL HYDROCHLORIDE [Concomitant]
     Active Substance: AMLODIPINE BESYLATE\BENAZEPRIL HYDROCHLORIDE

REACTIONS (1)
  - Death [Fatal]

NARRATIVE: CASE EVENT DATE: 20231201
